FAERS Safety Report 5481594-4 (Version None)
Quarter: 2007Q4

REPORT INFORMATION
  Report Type: 
  Country: None (occurrence: None)
  Receive Date: 20071010
  Receipt Date: 20071004
  Transmission Date: 20080405
  Serious: Yes (Hospitalization)
  Sender: FDA-Public Use
  Company Number: IE-JNJFOC-20071002031

PATIENT
  Sex: Male

DRUGS (1)
  1. RISPERDAL CONSTA [Suspect]
     Indication: DRUG USE FOR UNKNOWN INDICATION
     Route: 030

REACTIONS (5)
  - AGITATION [None]
  - BLOOD CHOLESTEROL INCREASED [None]
  - LIPIDS INCREASED [None]
  - LIVER DISORDER [None]
  - PSYCHOTIC DISORDER [None]
